FAERS Safety Report 12653680 (Version 2)
Quarter: 2016Q3

REPORT INFORMATION
  Report Type: Report from Study
  Country: US (occurrence: US)
  Receive Date: 20160816
  Receipt Date: 20160922
  Transmission Date: 20161109
  Serious: Yes (Hospitalization, Other)
  Sender: FDA-Public Use
  Company Number: US-AMGEN-USASL2016104878

PATIENT
  Age: 58 Year
  Sex: Female

DRUGS (1)
  1. ENBREL [Suspect]
     Active Substance: ETANERCEPT
     Indication: RHEUMATOID ARTHRITIS
     Dosage: 50 MG, QWK
     Route: 065
     Dates: start: 2013

REACTIONS (12)
  - Tibia fracture [Unknown]
  - Surgery [Unknown]
  - Emphysema [Unknown]
  - Meniscus injury [Unknown]
  - Pain [Unknown]
  - Lower limb fracture [Unknown]
  - Arthritis [Unknown]
  - Volvulus [Unknown]
  - Chronic obstructive pulmonary disease [Unknown]
  - Condition aggravated [Unknown]
  - Fall [Unknown]
  - Hernia [Unknown]

NARRATIVE: CASE EVENT DATE: 2014
